FAERS Safety Report 24411874 (Version 1)
Quarter: 2024Q4

REPORT INFORMATION
  Report Type: Spontaneous
  Country: US (occurrence: US)
  Receive Date: 20241008
  Receipt Date: 20241008
  Transmission Date: 20250114
  Serious: Yes (Other)
  Sender: FRESENIUS KABI
  Company Number: US-FreseniusKabi-FK202414522

PATIENT
  Age: 6 Month
  Sex: Male
  Weight: 3 kg

DRUGS (5)
  1. SMOFLIPID [Suspect]
     Active Substance: FISH OIL\MEDIUM-CHAIN TRIGLYCERIDES\OLIVE OIL\SOYBEAN OIL
     Indication: Parenteral nutrition
     Dosage: LIPID INJECTABLE EMULSION FOR INFUSION?DOSAGE: 3 G/KG/DAY
     Route: 042
     Dates: end: 202409
  2. SMOFLIPID [Suspect]
     Active Substance: FISH OIL\MEDIUM-CHAIN TRIGLYCERIDES\OLIVE OIL\SOYBEAN OIL
     Indication: Short-bowel syndrome
     Dosage: LIPID INJECTABLE EMULSION FOR INFUSION?DOSAGE: 2 G/KG/DAY?THERAPY ONGOING
     Route: 042
     Dates: start: 20240927
  3. LOVENOX [Suspect]
     Active Substance: ENOXAPARIN SODIUM
     Indication: Thrombosis
     Dosage: THERAPY ONGOING
     Route: 058
  4. LOVENOX [Suspect]
     Active Substance: ENOXAPARIN SODIUM
  5. UNSPECIFIED INGREDIENT [Concomitant]
     Active Substance: UNSPECIFIED INGREDIENT
     Indication: Product used for unknown indication

REACTIONS (4)
  - Gastric fistula [Unknown]
  - Thrombosis in device [Unknown]
  - Gastrointestinal haemorrhage [Recovered/Resolved]
  - Bilirubin conjugated increased [Not Recovered/Not Resolved]

NARRATIVE: CASE EVENT DATE: 20240101
